FAERS Safety Report 18595056 (Version 1)
Quarter: 2020Q4

REPORT INFORMATION
  Report Type: Spontaneous
  Country: IT (occurrence: IT)
  Receive Date: 20201209
  Receipt Date: 20201209
  Transmission Date: 20210114
  Serious: Yes (Hospitalization, Other)
  Sender: FDA-Public Use
  Company Number: IT-SA-2020SA350376

PATIENT

DRUGS (4)
  1. FLECAINIDE ACETATE. [Suspect]
     Active Substance: FLECAINIDE ACETATE
     Indication: DRUG ABUSE
     Dosage: 5 DF, TOTAL
     Route: 048
     Dates: start: 20200930, end: 20200930
  2. CORDARONE [Suspect]
     Active Substance: AMIODARONE HYDROCHLORIDE
     Indication: DRUG ABUSE
     Dosage: 5 DF, TOTAL
     Route: 048
     Dates: start: 20200930, end: 20200930
  3. INSULIN LISPRO [Suspect]
     Active Substance: INSULIN LISPRO
     Indication: DRUG ABUSE
     Dosage: 5 DF, TOTAL
     Route: 048
     Dates: start: 20200930, end: 20200930
  4. MIDAZOLAM. [Suspect]
     Active Substance: MIDAZOLAM
     Indication: DRUG ABUSE
     Dosage: 5 MG, TOTAL
     Route: 048
     Dates: start: 20200930, end: 20200930

REACTIONS (4)
  - Sopor [Unknown]
  - Agitation [Unknown]
  - Drug abuse [Unknown]
  - Product use issue [Unknown]

NARRATIVE: CASE EVENT DATE: 20200930
